FAERS Safety Report 25978652 (Version 2)
Quarter: 2025Q4

REPORT INFORMATION
  Report Type: Spontaneous
  Country: EU (occurrence: EU)
  Receive Date: 20251030
  Receipt Date: 20251114
  Transmission Date: 20260118
  Serious: No
  Sender: AMGEN
  Company Number: EU-ABBVIE-6503736

PATIENT
  Sex: Female

DRUGS (3)
  1. ADALIMUMAB [Suspect]
     Active Substance: ADALIMUMAB
     Indication: Product used for unknown indication
     Dosage: UNK
     Route: 058
     Dates: start: 202403, end: 202408
  2. UPADACITINIB [Suspect]
     Active Substance: UPADACITINIB
     Indication: Dermatitis atopic
     Dosage: 15 MILLIGRAM, QD
     Route: 048
     Dates: start: 202409
  3. Valerate c [Concomitant]
     Indication: Product used for unknown indication
     Dosage: DIFLUCORTOLONE VALERATE CREAM
     Route: 061

REACTIONS (1)
  - Skin test positive [Unknown]
